FAERS Safety Report 7565054-2 (Version None)
Quarter: 2011Q2

REPORT INFORMATION
  Report Type: 
  Country: None (occurrence: None)
  Receive Date: 20110622
  Receipt Date: 20110419
  Transmission Date: 20111010
  Serious: Yes (Death)
  Sender: FDA-Public Use
  Company Number: US-MYLANLABS-2011S1008351

PATIENT
  Age: 74 Year
  Sex: Male

DRUGS (8)
  1. BACTRIM [Concomitant]
  2. NORVASC [Concomitant]
  3. VALIUM [Concomitant]
  4. ZOLOFT [Concomitant]
  5. FLOMAX [Concomitant]
  6. KEPPRA [Concomitant]
  7. CLOZAPINE [Suspect]
     Indication: PSYCHOTIC DISORDER
     Route: 048
     Dates: start: 20090323
  8. NAMENDA [Concomitant]

REACTIONS (1)
  - DEATH [None]
